FAERS Safety Report 6137114-4 (Version None)
Quarter: 2009Q1

REPORT INFORMATION
  Report Type: 
  Country: None (occurrence: None)
  Receive Date: 20090330
  Receipt Date: 20090325
  Transmission Date: 20090719
  Serious: Yes (Hospitalization)
  Sender: FDA-Public Use
  Company Number: DE-BRISTOL-MYERS SQUIBB COMPANY-14499297

PATIENT
  Age: 40 Year
  Sex: Male
  Weight: 63 kg

DRUGS (7)
  1. ABATACEPT [Suspect]
     Indication: ANKYLOSING SPONDYLITIS
     Dosage: STARTED ON 25MAR09
     Route: 042
     Dates: start: 20090107
  2. PENTASA [Concomitant]
     Route: 048
     Dates: start: 20081101
  3. PREDNISOLONE [Concomitant]
     Route: 048
     Dates: start: 20090125
  4. FOLIC ACID [Concomitant]
     Route: 048
     Dates: start: 20090211
  5. PANTOPRAZOLE SODIUM [Concomitant]
     Route: 048
     Dates: start: 20090211
  6. METOCLOPRAMIDE [Concomitant]
     Route: 048
     Dates: start: 20090221
  7. CIPROFLOXACIN [Concomitant]
     Route: 048
     Dates: start: 20090223

REACTIONS (2)
  - COLITIS [None]
  - CROHN'S DISEASE [None]
